FAERS Safety Report 19725898 (Version 1)
Quarter: 2021Q3

REPORT INFORMATION
  Report Type: Spontaneous
  Country: AR (occurrence: AR)
  Receive Date: 20210820
  Receipt Date: 20210820
  Transmission Date: 20211014
  Serious: Yes (Death, Other)
  Sender: FDA-Public Use
  Company Number: AR-ASTELLAS-2021US031037

PATIENT
  Age: 73 Year
  Sex: Male

DRUGS (1)
  1. XTANDI [Suspect]
     Active Substance: ENZALUTAMIDE
     Indication: PROSTATE CANCER METASTATIC
     Route: 065

REACTIONS (4)
  - Cardiac arrest [Fatal]
  - Off label use [Unknown]
  - Malignant neoplasm progression [Fatal]
  - Underdose [Unknown]

NARRATIVE: CASE EVENT DATE: 20210610
